FAERS Safety Report 8791016 (Version 1)
Quarter: 2012Q4

REPORT INFORMATION
  Report Type: Spontaneous
  Country: US (occurrence: None)
  Receive Date: 20120910
  Receipt Date: 20120910
  Transmission Date: 20130627
  Serious: Yes (Other)
  Sender: FDA-Public Use
  Company Number: 2012HGS-003903

PATIENT
  Age: 56 Year
  Sex: Female
  Weight: 60.78 kg

DRUGS (4)
  1. BENLYSTA [Suspect]
     Indication: SYSTEMIC LUPUS ERYTHEMATOSIS
     Dosage: 1 in 28 d, intravenous drip
     Route: 041
     Dates: start: 20111206
  2. BENLYSTA [Suspect]
     Indication: SYSTEMIC LUPUS ERYTHEMATOSIS
     Dates: end: 20120807
  3. PREDNISONE (PREDNISONE) (PREDNISONE) [Concomitant]
  4. ALEVE (NAPROXEN SODIUM) (NAPROXEN SODIUM) [Concomitant]

REACTIONS (4)
  - Dizziness [None]
  - Loss of consciousness [None]
  - Feeling abnormal [None]
  - Weight increased [None]
